FAERS Safety Report 17965389 (Version 1)
Quarter: 2020Q3

REPORT INFORMATION
  Report Type: Report from Study
  Country: US (occurrence: US)
  Receive Date: 20200701
  Receipt Date: 20200701
  Transmission Date: 20201103
  Serious: Yes (Death)
  Sender: FDA-Public Use
  Company Number: US-TAIHO ONCOLOGY  INC-EU-2020-02325

PATIENT
  Sex: Female

DRUGS (11)
  1. AMITRIPTYLIN [Concomitant]
     Active Substance: AMITRIPTYLINE
  2. OXYCODONE [Concomitant]
     Active Substance: OXYCODONE
  3. LISINOPRIL. [Concomitant]
     Active Substance: LISINOPRIL
  4. DULOXETINE. [Concomitant]
     Active Substance: DULOXETINE
  5. MIRTAZAPINE. [Concomitant]
     Active Substance: MIRTAZAPINE
  6. STIVARGA [Concomitant]
     Active Substance: REGORAFENIB
  7. LONSURF [Suspect]
     Active Substance: TIPIRACIL HYDROCHLORIDE\TRIFLURIDINE
     Indication: COLON CANCER
     Dosage: CURRENT CYCLE UNKNOWN
     Route: 048
     Dates: start: 20191213
  8. POT CHLORIDE [Concomitant]
     Active Substance: POTASSIUM CHLORIDE
     Dosage: MICRO
  9. ENOXAPARIN [Concomitant]
     Active Substance: ENOXAPARIN
  10. METOPROL TAR [Concomitant]
  11. POT CHLORIDE [Concomitant]
     Active Substance: POTASSIUM CHLORIDE
     Dosage: UNKNOWN

REACTIONS (1)
  - Death [Fatal]
